FAERS Safety Report 23246395 (Version 2)
Quarter: 2025Q1

REPORT INFORMATION
  Report Type: Report from Study
  Country: US (occurrence: US)
  Receive Date: 20231130
  Receipt Date: 20250108
  Transmission Date: 20250409
  Serious: No
  Sender: SANOFI AVENTIS
  Company Number: US-SA-SAC20231122001479

PATIENT
  Age: 16 Year
  Sex: Female
  Weight: 78 kg

DRUGS (3)
  1. DUPIXENT [Suspect]
     Active Substance: DUPILUMAB
     Indication: Dermatitis atopic
     Dosage: 300 MG, QOW
     Route: 058
     Dates: start: 20221123
  2. TYLENOL [Concomitant]
     Active Substance: ACETAMINOPHEN
  3. PARAFFIN [Concomitant]
     Active Substance: PARAFFIN

REACTIONS (4)
  - Dermatitis atopic [Recovering/Resolving]
  - Erythema [Unknown]
  - Skin irritation [Unknown]
  - Product storage error [Unknown]
